FAERS Safety Report 20884479 (Version 1)
Quarter: 2022Q2

REPORT INFORMATION
  Report Type: Spontaneous
  Country: US (occurrence: US)
  Receive Date: 20220527
  Receipt Date: 20220527
  Transmission Date: 20220721
  Serious: No
  Sender: FDA-Public Use
  Company Number: US-JNJFOC-20220547804

PATIENT
  Age: 12 Year
  Sex: Female

DRUGS (6)
  1. ZYRTEC [Suspect]
     Active Substance: CETIRIZINE HYDROCHLORIDE
     Indication: Pulmonary congestion
     Route: 065
     Dates: start: 202205
  2. ZYRTEC [Suspect]
     Active Substance: CETIRIZINE HYDROCHLORIDE
     Indication: Nasopharyngitis
  3. ZYRTEC [Suspect]
     Active Substance: CETIRIZINE HYDROCHLORIDE
     Indication: Myalgia
  4. MUCINEX [Concomitant]
     Active Substance: GUAIFENESIN
     Indication: Pulmonary congestion
     Route: 065
     Dates: start: 202205
  5. MUCINEX [Concomitant]
     Active Substance: GUAIFENESIN
     Indication: Nasopharyngitis
  6. MUCINEX [Concomitant]
     Active Substance: GUAIFENESIN
     Indication: Myalgia

REACTIONS (1)
  - Product use in unapproved indication [Unknown]

NARRATIVE: CASE EVENT DATE: 20220501
